FAERS Safety Report 9511393 (Version 1)
Quarter: 2013Q3

REPORT INFORMATION
  Report Type: Spontaneous
  Country: US (occurrence: None)
  Receive Date: 20130906
  Receipt Date: 20130906
  Transmission Date: 20140515
  Serious: Yes (Other)
  Sender: FDA-Public Use
  Company Number: 001586931A

PATIENT
  Age: 15 Year
  Sex: Female

DRUGS (2)
  1. PROACTIV SOLUTION RENEWING CLEANSER [Suspect]
     Indication: ACNE
     Dosage: 1-3 X PER DAY DERMAL
     Route: 023
     Dates: start: 20110811, end: 20130806
  2. PROACTIV SOLUTION REPAIRING TREATMENT [Suspect]
     Indication: ACNE
     Dosage: 1-3X PER DAY DERMAL
     Route: 023

REACTIONS (1)
  - Convulsion [None]
